APPROVED DRUG PRODUCT: BETAXOLOL HYDROCHLORIDE
Active Ingredient: BETAXOLOL HYDROCHLORIDE
Strength: 20MG
Dosage Form/Route: TABLET;ORAL
Application: A075541 | Product #002 | TE Code: AB
Applicant: EPIC PHARMA LLC
Approved: Oct 22, 1999 | RLD: No | RS: Yes | Type: RX